FAERS Safety Report 7393084-2 (Version None)
Quarter: 2011Q2

REPORT INFORMATION
  Report Type: 
  Country: None (occurrence: None)
  Receive Date: 20110404
  Receipt Date: 20110221
  Transmission Date: 20111010
  Serious: Yes (Life-Threatening, Disabling, Other)
  Sender: FDA-Public Use
  Company Number: US-BAXTER-2009BH018877

PATIENT
  Age: 60 Year
  Sex: Female
  Weight: 68 kg

DRUGS (76)
  1. HEPARIN SODIUM INJECTION [Suspect]
     Route: 042
     Dates: start: 20071212, end: 20071212
  2. HEPARIN SODIUM INJECTION [Suspect]
     Route: 040
     Dates: start: 20071219, end: 20071219
  3. HEPARIN SODIUM INJECTION [Suspect]
     Route: 042
     Dates: start: 20071206, end: 20071206
  4. HEPARIN SODIUM INJECTION [Suspect]
     Route: 042
     Dates: start: 20071215, end: 20071218
  5. HEPARIN SODIUM INJECTION [Suspect]
     Route: 042
     Dates: start: 20071206, end: 20071206
  6. HEPARIN SODIUM INJECTION [Suspect]
     Route: 042
     Dates: start: 20071206, end: 20071206
  7. HEPARIN SODIUM INJECTION [Suspect]
     Route: 042
     Dates: start: 20071206, end: 20071206
  8. HEPARIN SODIUM INJECTION [Suspect]
     Route: 042
     Dates: start: 20071206, end: 20071206
  9. HEPARIN SODIUM INJECTION [Suspect]
     Route: 065
     Dates: start: 20071206, end: 20071206
  10. MAGNESIUM [Concomitant]
     Indication: PRODUCT USED FOR UNKNOWN INDICATION
     Route: 065
  11. HEPARIN SODIUM INJECTION [Suspect]
     Route: 042
     Dates: start: 20071206, end: 20071206
  12. HEPARIN SODIUM INJECTION [Suspect]
     Route: 042
     Dates: start: 20071206, end: 20071206
  13. HEPARIN SODIUM INJECTION [Suspect]
     Route: 042
     Dates: start: 20071212, end: 20071212
  14. HEPARIN SODIUM INJECTION [Suspect]
     Route: 042
     Dates: start: 20071215, end: 20071218
  15. HEPARIN SODIUM INJECTION [Suspect]
     Route: 042
     Dates: start: 20071203, end: 20071203
  16. HEPARIN SODIUM INJECTION [Suspect]
     Route: 042
     Dates: start: 20071205, end: 20071205
  17. LISINOPRIL [Concomitant]
     Indication: PRODUCT USED FOR UNKNOWN INDICATION
     Route: 065
  18. HEPARIN SODIUM INJECTION [Suspect]
     Indication: INTRA-AORTIC BALLOON PLACEMENT
     Route: 042
     Dates: start: 20071203, end: 20071225
  19. HEPARIN SODIUM INJECTION [Suspect]
     Indication: HAEMODIALYSIS
     Route: 042
     Dates: start: 20071203, end: 20071225
  20. HEPARIN SODIUM INJECTION [Suspect]
     Route: 042
     Dates: start: 20071212, end: 20071215
  21. HEPARIN SODIUM INJECTION [Suspect]
     Route: 042
     Dates: start: 20071212, end: 20071215
  22. HEPARIN SODIUM INJECTION [Suspect]
     Route: 042
     Dates: start: 20071215, end: 20071218
  23. HEPARIN SODIUM INJECTION [Suspect]
     Route: 042
     Dates: start: 20071215, end: 20071218
  24. HEPARIN SODIUM INJECTION [Suspect]
     Route: 042
     Dates: start: 20071204, end: 20071204
  25. HEPARIN SODIUM INJECTION [Suspect]
     Route: 042
     Dates: start: 20071203, end: 20071203
  26. HEPARIN SODIUM INJECTION [Suspect]
     Route: 042
     Dates: start: 20071207, end: 20071207
  27. HEPARIN SODIUM INJECTION [Suspect]
     Route: 042
     Dates: start: 20071207, end: 20071207
  28. HEPARIN SODIUM INJECTION [Suspect]
     Route: 065
     Dates: start: 20071206, end: 20071206
  29. XANAX [Concomitant]
     Indication: PRODUCT USED FOR UNKNOWN INDICATION
     Route: 065
  30. ASPIRIN [Concomitant]
     Indication: PRODUCT USED FOR UNKNOWN INDICATION
     Route: 065
  31. COREG [Concomitant]
     Indication: PRODUCT USED FOR UNKNOWN INDICATION
     Route: 065
  32. PAROXETINE HYDROCHLORIDE [Concomitant]
     Indication: PRODUCT USED FOR UNKNOWN INDICATION
     Route: 065
  33. HEPARIN SODIUM INJECTION [Suspect]
     Route: 040
     Dates: start: 20071219, end: 20071219
  34. HEPARIN SODIUM INJECTION [Suspect]
     Route: 042
     Dates: start: 20071212, end: 20071215
  35. HEPARIN SODIUM INJECTION [Suspect]
     Route: 042
     Dates: start: 20071207, end: 20071207
  36. HEPARIN SODIUM INJECTION [Suspect]
     Route: 042
     Dates: start: 20071225, end: 20071225
  37. HEPARIN SODIUM INJECTION [Suspect]
     Route: 042
     Dates: start: 20071225, end: 20071225
  38. ACETAMINOPHEN [Concomitant]
     Indication: PRODUCT USED FOR UNKNOWN INDICATION
     Route: 065
  39. ONDANSETRON HYDROCHLORIDE [Concomitant]
     Indication: PRODUCT USED FOR UNKNOWN INDICATION
     Route: 065
  40. AMBIEN [Concomitant]
     Indication: PRODUCT USED FOR UNKNOWN INDICATION
     Route: 065
  41. HEPARIN SODIUM INJECTION [Suspect]
     Route: 042
     Dates: start: 20071212, end: 20071212
  42. HEPARIN SODIUM INJECTION [Suspect]
     Route: 042
     Dates: start: 20071212, end: 20071215
  43. HEPARIN SODIUM INJECTION [Suspect]
     Route: 042
     Dates: start: 20071205, end: 20071205
  44. HEPARIN SODIUM INJECTION [Suspect]
     Route: 042
     Dates: start: 20071207, end: 20071207
  45. HEPARIN SODIUM INJECTION [Suspect]
     Route: 042
     Dates: start: 20071207, end: 20071207
  46. HEPARIN SODIUM INJECTION [Suspect]
     Route: 042
     Dates: start: 20071225, end: 20071225
  47. HEPARIN SODIUM INJECTION [Suspect]
     Route: 058
     Dates: start: 20071218, end: 20071231
  48. POTASSIUM CHLORIDE [Concomitant]
     Indication: PRODUCT USED FOR UNKNOWN INDICATION
     Route: 065
  49. HEPARIN SODIUM INJECTION [Suspect]
     Indication: CORONARY ARTERY BYPASS
     Route: 042
     Dates: start: 20071203, end: 20071225
  50. HEPARIN SODIUM INJECTION [Suspect]
     Route: 042
     Dates: start: 20071212, end: 20071215
  51. HEPARIN SODIUM INJECTION [Suspect]
     Route: 042
     Dates: start: 20071215, end: 20071218
  52. HEPARIN SODIUM INJECTION [Suspect]
     Route: 042
     Dates: start: 20071206, end: 20071206
  53. HEPARIN SODIUM INJECTION [Suspect]
     Route: 042
     Dates: start: 20071206, end: 20071206
  54. HEPARIN SODIUM 1,000 UNITS AND SODIUM CHLORIDE 0.9% [Suspect]
     Indication: PRODUCT USED FOR UNKNOWN INDICATION
     Route: 042
     Dates: start: 20071206, end: 20071206
  55. HEPARIN SODIUM INJECTION [Suspect]
     Route: 042
     Dates: start: 20071226, end: 20071226
  56. MAALOX                                  /USA/ [Concomitant]
     Indication: PRODUCT USED FOR UNKNOWN INDICATION
     Route: 065
  57. HEPARIN SODIUM INJECTION [Suspect]
     Route: 042
     Dates: start: 20071204, end: 20071204
  58. HEPARIN SODIUM INJECTION [Suspect]
     Route: 042
     Dates: start: 20071203, end: 20071203
  59. HEPARIN SODIUM INJECTION [Suspect]
     Route: 042
     Dates: start: 20071206, end: 20071206
  60. HEPARIN SODIUM INJECTION [Suspect]
     Route: 042
     Dates: start: 20071206, end: 20071206
  61. HEPARIN SODIUM INJECTION [Suspect]
     Route: 058
     Dates: start: 20071218, end: 20071231
  62. HEPARIN SODIUM INJECTION [Suspect]
     Route: 042
     Dates: start: 20071226, end: 20071226
  63. CATAPRES                                /USA/ [Concomitant]
     Indication: PRODUCT USED FOR UNKNOWN INDICATION
     Route: 065
  64. MAGNESIUM HYDROXIDE [Concomitant]
     Indication: PRODUCT USED FOR UNKNOWN INDICATION
     Route: 065
  65. HEPARIN SODIUM INJECTION [Suspect]
     Route: 042
     Dates: start: 20071206, end: 20071206
  66. HEPARIN SODIUM INJECTION [Suspect]
     Route: 040
     Dates: start: 20071219, end: 20071219
  67. HEPARIN SODIUM INJECTION [Suspect]
     Route: 042
     Dates: start: 20071206, end: 20071206
  68. HEPARIN SODIUM INJECTION [Suspect]
     Route: 042
     Dates: start: 20071206, end: 20071206
  69. HEPARIN SODIUM INJECTION [Suspect]
     Route: 042
     Dates: start: 20071212, end: 20071215
  70. HEPARIN SODIUM INJECTION [Suspect]
     Route: 042
     Dates: start: 20071206, end: 20071206
  71. HEPARIN SODIUM INJECTION [Suspect]
     Route: 042
     Dates: start: 20071215, end: 20071218
  72. HEPARIN SODIUM INJECTION [Suspect]
     Route: 042
     Dates: start: 20071204, end: 20071204
  73. HEPARIN SODIUM INJECTION [Suspect]
     Route: 042
     Dates: start: 20071205, end: 20071205
  74. HEPARIN SODIUM INJECTION [Suspect]
     Route: 042
     Dates: start: 20071207, end: 20071207
  75. HEPARIN SODIUM INJECTION [Suspect]
     Route: 058
     Dates: start: 20071218, end: 20071231
  76. LASIX [Concomitant]
     Indication: PRODUCT USED FOR UNKNOWN INDICATION
     Route: 065

REACTIONS (37)
  - RENAL FAILURE ACUTE [None]
  - SEPSIS [None]
  - LOW CARDIAC OUTPUT SYNDROME [None]
  - DEHYDRATION [None]
  - HYPOTENSION [None]
  - RESPIRATORY FAILURE [None]
  - TRAUMATIC LIVER INJURY [None]
  - CARDIAC TAMPONADE [None]
  - HAEMOPTYSIS [None]
  - HYPOXIA [None]
  - HYPERCALCAEMIA [None]
  - IMPAIRED GASTRIC EMPTYING [None]
  - VENTRICULAR TACHYCARDIA [None]
  - POST PROCEDURAL HAEMORRHAGE [None]
  - DUODENITIS [None]
  - DEFORMITY [None]
  - URINARY TRACT INFECTION ENTEROCOCCAL [None]
  - PYREXIA [None]
  - CEREBROVASCULAR ACCIDENT [None]
  - METABOLIC ACIDOSIS [None]
  - LEUKOCYTOSIS [None]
  - WOUND INFECTION [None]
  - URINARY TRACT INFECTION PSEUDOMONAL [None]
  - CARDIOGENIC SHOCK [None]
  - TOXIC ENCEPHALOPATHY [None]
  - ARRHYTHMIA [None]
  - CLOSTRIDIUM DIFFICILE COLITIS [None]
  - CARDIAC ARREST [None]
  - CARDIAC FAILURE [None]
  - THROMBOCYTOPENIA [None]
  - HYPERGLYCAEMIA [None]
  - HYPERNATRAEMIA [None]
  - MALNUTRITION [None]
  - FAILURE TO THRIVE [None]
  - DIARRHOEA [None]
  - URINARY TRACT INFECTION FUNGAL [None]
  - GASTRITIS [None]
